FAERS Safety Report 23577481 (Version 2)
Quarter: 2024Q1

REPORT INFORMATION
  Report Type: Spontaneous
  Country: BE (occurrence: BE)
  Receive Date: 20240228
  Receipt Date: 20240308
  Transmission Date: 20240410
  Serious: Yes (Hospitalization, Other)
  Sender: FDA-Public Use
  Company Number: BE-BRISTOL-MYERS SQUIBB COMPANY-2023-187212

PATIENT
  Age: 77 Year
  Sex: Female

DRUGS (14)
  1. DEXAMETHASONE ACETATE [Suspect]
     Active Substance: DEXAMETHASONE ACETATE
     Dosage: 20.000MG
     Route: 048
     Dates: start: 20200401, end: 20200526
  2. DEXAMETHASONE ACETATE [Suspect]
     Active Substance: DEXAMETHASONE ACETATE
     Dosage: 20.000MG
     Route: 048
     Dates: start: 20200527, end: 20200818
  3. DEXAMETHASONE ACETATE [Suspect]
     Active Substance: DEXAMETHASONE ACETATE
     Dosage: 20.000MG
     Route: 048
     Dates: start: 20200819, end: 20200924
  4. DEXAMETHASONE ACETATE [Suspect]
     Active Substance: DEXAMETHASONE ACETATE
     Dosage: 20.000MG
     Route: 048
     Dates: start: 20201028, end: 20201124
  5. DEXAMETHASONE ACETATE [Suspect]
     Active Substance: DEXAMETHASONE ACETATE
     Indication: Plasma cell myeloma
     Dosage: 40.000MG
     Route: 048
     Dates: start: 20200302, end: 20200331
  6. REVLIMID [Suspect]
     Active Substance: LENALIDOMIDE
     Dosage: 20.000MG QD
     Route: 048
     Dates: start: 20200916, end: 20200924
  7. REVLIMID [Suspect]
     Active Substance: LENALIDOMIDE
     Dosage: 20.000MG QD
     Route: 048
     Dates: start: 20201028, end: 20201117
  8. REVLIMID [Suspect]
     Active Substance: LENALIDOMIDE
     Indication: Plasma cell myeloma
     Dosage: 25.000MG QD
     Route: 048
     Dates: start: 20200303, end: 20200323
  9. REVLIMID [Suspect]
     Active Substance: LENALIDOMIDE
     Dosage: 25.000MG QD
     Route: 048
     Dates: start: 20200401, end: 20200421
  10. REVLIMID [Suspect]
     Active Substance: LENALIDOMIDE
     Dosage: 25.000MG QD
     Route: 048
     Dates: start: 20200429, end: 20200519
  11. REVLIMID [Suspect]
     Active Substance: LENALIDOMIDE
     Dosage: 25.000MG QD
     Route: 048
     Dates: start: 20200527, end: 20200616
  12. REVLIMID [Suspect]
     Active Substance: LENALIDOMIDE
     Dosage: 25.000MG QD
     Route: 048
     Dates: start: 20200624, end: 20200714
  13. REVLIMID [Suspect]
     Active Substance: LENALIDOMIDE
     Dosage: 25.000MG QD
     Route: 048
     Dates: start: 20200722, end: 20200811
  14. REVLIMID [Suspect]
     Active Substance: LENALIDOMIDE
     Dosage: 25.000MG QD
     Route: 048
     Dates: start: 20200819, end: 20200908

REACTIONS (4)
  - COVID-19 pneumonia [Recovered/Resolved]
  - Peripheral sensory neuropathy [Recovered/Resolved]
  - Herpes zoster [Recovered/Resolved]
  - Diarrhoea [Recovered/Resolved]

NARRATIVE: CASE EVENT DATE: 20200624
